FAERS Safety Report 12204565 (Version 1)
Quarter: 2016Q1

REPORT INFORMATION
  Report Type: Spontaneous
  Country: US (occurrence: US)
  Receive Date: 20160323
  Receipt Date: 20160323
  Transmission Date: 20160526
  Serious: Yes (Other)
  Sender: FDA-Public Use
  Company Number: US-PFIZER INC-2016162348

PATIENT
  Age: 62 Year
  Sex: Female
  Weight: 111.6 kg

DRUGS (1)
  1. AROMASIN [Suspect]
     Active Substance: EXEMESTANE
     Indication: BREAST CANCER METASTATIC
     Dosage: 25MG, ONE TABLET BY MOUTH AFTER A MEAL DAILY
     Route: 048
     Dates: start: 2014

REACTIONS (4)
  - Haemoptysis [Unknown]
  - Rhinorrhoea [Not Recovered/Not Resolved]
  - Epistaxis [Unknown]
  - Sinusitis [Unknown]

NARRATIVE: CASE EVENT DATE: 2015
